FAERS Safety Report 6609913-3 (Version None)
Quarter: 2010Q1

REPORT INFORMATION
  Report Type: 
  Country: None (occurrence: None)
  Receive Date: 20100302
  Receipt Date: 20100226
  Transmission Date: 20100710
  Serious: Yes (Death, Hospitalization, Other)
  Sender: FDA-Public Use
  Company Number: PHEH2009US16252

PATIENT
  Age: 72 Year
  Sex: Male
  Weight: 79.9 kg

DRUGS (4)
  1. EXJADE [Suspect]
     Indication: ACUTE MYELOID LEUKAEMIA
     Dosage: 500 MG, TID
     Route: 048
     Dates: start: 20090514, end: 20090924
  2. EXJADE [Suspect]
     Indication: MYELODYSPLASTIC SYNDROME
  3. EXJADE [Suspect]
     Indication: IRON OVERLOAD
  4. EXJADE [Suspect]
     Indication: LYMPHATIC DISORDER

REACTIONS (3)
  - FATIGUE [None]
  - INFECTION [None]
  - PNEUMONIA [None]
